FAERS Safety Report 19769997 (Version 2)
Quarter: 2021Q4

REPORT INFORMATION
  Report Type: Spontaneous
  Country: CN (occurrence: CN)
  Receive Date: 20210831
  Receipt Date: 20211002
  Transmission Date: 20220303
  Serious: Yes (Death)
  Sender: FDA-Public Use
  Company Number: CN-JIANGSU HENGRUI MEDICINE CO., LTD.-2117883

PATIENT

DRUGS (4)
  1. CISATRACURIUM BESYLATE [Suspect]
     Active Substance: CISATRACURIUM BESYLATE
     Indication: Induction of anaesthesia
  2. PROPOFOL [Suspect]
     Active Substance: PROPOFOL
  3. IMIDAZOLE [Suspect]
     Active Substance: IMIDAZOLE
  4. SUFENTANIL [Suspect]
     Active Substance: SUFENTANIL

REACTIONS (1)
  - Death [Fatal]
